FAERS Safety Report 6010495-8 (Version None)
Quarter: 2008Q4

REPORT INFORMATION
  Report Type: 
  Country: None (occurrence: None)
  Receive Date: 20081218
  Receipt Date: 20081215
  Transmission Date: 20090506
  Serious: Yes (Life-Threatening)
  Sender: FDA-Public Use
  Company Number: IL-WYE-H07238308

PATIENT
  Age: 15 Year
  Sex: Male

DRUGS (2)
  1. TAZOCIN [Suspect]
     Indication: PROPHYLAXIS
     Route: 042
     Dates: start: 20081201, end: 20081201
  2. AMIKACIN [Concomitant]
     Dosage: UNKNOWN
     Route: 065
     Dates: start: 20081201

REACTIONS (1)
  - SEPTIC SHOCK [None]
